FAERS Safety Report 15027576 (Version 2)
Quarter: 2025Q4

REPORT INFORMATION
  Report Type: Spontaneous
  Country: US (occurrence: US)
  Receive Date: 20180619
  Receipt Date: 20251103
  Transmission Date: 20260118
  Serious: Yes (Hospitalization, Other)
  Sender: ACCORD
  Company Number: US-MLMSERVICE-20180604-1215214-1

PATIENT
  Age: 36 Year
  Sex: Female

DRUGS (2)
  1. MYCOPHENOLIC ACID [Suspect]
     Active Substance: MYCOPHENOLIC ACID
     Indication: Acute kidney injury
  2. WARFARIN [Concomitant]
     Active Substance: WARFARIN
     Indication: Pulmonary embolism

REACTIONS (2)
  - Off label use [Unknown]
  - Posterior reversible encephalopathy syndrome [Recovered/Resolved]
